FAERS Safety Report 4962185-8 (Version None)
Quarter: 2006Q2

REPORT INFORMATION
  Report Type: 
  Country: None (occurrence: None)
  Receive Date: 20060404
  Receipt Date: 20060322
  Transmission Date: 20061013
  Serious: Yes (Other)
  Sender: FDA-Public Use
  Company Number: PHBS2006BR04465

PATIENT
  Sex: Female

DRUGS (1)
  1. VOLTAREN (NVO) [Suspect]
     Dosage: UNK, UNK

REACTIONS (2)
  - BLINDNESS [None]
  - HEADACHE [None]
